FAERS Safety Report 13952433 (Version 1)
Quarter: 2017Q3

REPORT INFORMATION
  Report Type: Spontaneous
  Country: US (occurrence: US)
  Receive Date: 20170911
  Receipt Date: 20170911
  Transmission Date: 20171128
  Serious: Yes (Death)
  Sender: FDA-Public Use
  Company Number: US-TEVA-727393USA

PATIENT
  Age: 89 Year
  Sex: Female

DRUGS (2)
  1. FENTANYL. [Suspect]
     Active Substance: FENTANYL
     Indication: ARTHRALGIA
     Route: 062
     Dates: start: 201611
  2. FENTANYL. [Suspect]
     Active Substance: FENTANYL
     Indication: CARDIAC FAILURE CONGESTIVE

REACTIONS (3)
  - Dyspnoea [Fatal]
  - Cognitive disorder [Recovered/Resolved]
  - Drug intolerance [Not Recovered/Not Resolved]
